FAERS Safety Report 9760278 (Version 2)
Quarter: 2015Q3

REPORT INFORMATION
  Report Type: Spontaneous
  Country: US (occurrence: US)
  Receive Date: 20131216
  Receipt Date: 20150806
  Transmission Date: 20151125
  Serious: No
  Sender: FDA-Public Use
  Company Number: US-GILEAD-2010-0028896

PATIENT
  Age: 83 Year
  Sex: Female
  Weight: 58.97 kg

DRUGS (8)
  1. CELEBREX [Concomitant]
     Active Substance: CELECOXIB
  2. LETAIRIS [Suspect]
     Active Substance: AMBRISENTAN
     Indication: PULMONARY ARTERIAL HYPERTENSION
     Route: 048
     Dates: start: 20090416
  3. ASPIRIN. [Concomitant]
     Active Substance: ASPIRIN
  4. DILACOR XR [Concomitant]
     Active Substance: DILTIAZEM HYDROCHLORIDE
  5. LASIX [Concomitant]
     Active Substance: FUROSEMIDE
  6. OXYGEN. [Concomitant]
     Active Substance: OXYGEN
  7. SYNTHROID [Concomitant]
     Active Substance: LEVOTHYROXINE SODIUM
  8. HYDROCHLOROTHIAZIDE/TRIAMTERENE [Concomitant]

REACTIONS (1)
  - Choking [Unknown]
